FAERS Safety Report 21046600 (Version 2)
Quarter: 2022Q3

REPORT INFORMATION
  Report Type: Report from Study
  Country: US (occurrence: US)
  Receive Date: 20220706
  Receipt Date: 20220727
  Transmission Date: 20221026
  Serious: Yes (Hospitalization, Other)
  Sender: FDA-Public Use
  Company Number: US-HLS-202200682

PATIENT
  Age: 71 Year
  Sex: Female

DRUGS (1)
  1. CLOZAPINE [Suspect]
     Active Substance: CLOZAPINE
     Indication: Product used for unknown indication
     Dosage: PHYSICIAN WILL BE RESTARTING PATIENT ON 12.5MG AND INCREASE DOSE EVERY 3 DAYS BY 25MG TWICE A DAY AN
     Route: 048

REACTIONS (6)
  - Neutropenia [Unknown]
  - Neutrophil count increased [Recovered/Resolved]
  - Fall [Unknown]
  - Therapy interrupted [Unknown]
  - Pneumonia [Unknown]
  - Urinary tract infection [Unknown]

NARRATIVE: CASE EVENT DATE: 20220630
